FAERS Safety Report 5137459-0 (Version None)
Quarter: 2006Q4

REPORT INFORMATION
  Report Type: 
  Country: None (occurrence: None)
  Receive Date: 20061026
  Receipt Date: 20061026
  Transmission Date: 20070319
  Serious: No
  Sender: FDA-Public Use
  Company Number: None

PATIENT
  Age: 18 Year
  Sex: Female

DRUGS (1)
  1. TUBERSOL [Suspect]
     Dosage: INTERDERMAL;LT FOREARM
     Route: 023
     Dates: start: 20061011

REACTIONS (13)
  - ABDOMINAL PAIN [None]
  - CHEST PAIN [None]
  - HEART RATE INCREASED [None]
  - HYPERHIDROSIS [None]
  - HYPOAESTHESIA [None]
  - MALAISE [None]
  - MUSCLE SPASMS [None]
  - NAUSEA [None]
  - PALLOR [None]
  - PARAESTHESIA [None]
  - POSTURING [None]
  - RESPIRATORY RATE INCREASED [None]
  - RESTLESSNESS [None]
